FAERS Safety Report 7957152-6 (Version None)
Quarter: 2011Q4

REPORT INFORMATION
  Report Type: 
  Country: None (occurrence: None)
  Receive Date: 20111205
  Receipt Date: 20111201
  Transmission Date: 20120403
  Serious: Yes (Life-Threatening)
  Sender: FDA-Public Use
  Company Number: IT-BAYER-2011-115736

PATIENT
  Age: 39 Year
  Sex: Female

DRUGS (9)
  1. RAMIPRIL [Concomitant]
  2. MINOXIDIL [Concomitant]
  3. GRANULOCYTE MACROPHAGE COLONY STIM FACTOR [Concomitant]
  4. LANSOPRAZOLE [Concomitant]
  5. CLONIDINE [Concomitant]
  6. VALSARTAN [Concomitant]
  7. EPOGEN [Concomitant]
  8. ULTRAVIST 150 [Suspect]
     Indication: PRODUCT USED FOR UNKNOWN INDICATION
     Dosage: 123 ML, ONCE
     Route: 042
     Dates: start: 20111111, end: 20111111
  9. SIMVASTATIN [Concomitant]

REACTIONS (3)
  - PERIORBITAL OEDEMA [None]
  - PRURITUS GENERALISED [None]
  - HYPOTENSION [None]
